FAERS Safety Report 5954545-3 (Version None)
Quarter: 2008Q4

REPORT INFORMATION
  Report Type: 
  Country: None (occurrence: None)
  Receive Date: 20081117
  Receipt Date: 20081105
  Transmission Date: 20090506
  Serious: Yes (Other)
  Sender: FDA-Public Use
  Company Number: US-ROCHE-590333

PATIENT
  Sex: Female

DRUGS (2)
  1. PEG-INTERFERON A-2A (RO 25-8310) [Suspect]
     Indication: HEPATITIS C
     Dosage: FORMULATION: PRE-FILLED SYRINGE PATIENT IN WEEK 12
     Route: 065
     Dates: start: 20080815
  2. RIBAVIRIN [Suspect]
     Indication: HEPATITIS C
     Dosage: DIVIDED DOSES PATIENT IN WEEK 12
     Route: 065
     Dates: start: 20080815

REACTIONS (4)
  - ANXIETY [None]
  - DEPRESSION [None]
  - PARANOIA [None]
  - THIRST [None]
